FAERS Safety Report 18421987 (Version 1)
Quarter: 2020Q4

REPORT INFORMATION
  Report Type: Spontaneous
  Country: US (occurrence: US)
  Receive Date: 20201023
  Receipt Date: 20201023
  Transmission Date: 20210114
  Serious: No
  Sender: FDA-Public Use
  Company Number: US-PFIZER INC-2020407084

PATIENT
  Age: 72 Year
  Sex: Female
  Weight: 77.11 kg

DRUGS (2)
  1. COLESTIPOL HCL [Suspect]
     Active Substance: COLESTIPOL HYDROCHLORIDE
     Indication: BOWEL MOVEMENT IRREGULARITY
  2. COLESTIPOL HCL [Suspect]
     Active Substance: COLESTIPOL HYDROCHLORIDE
     Indication: CHOLECYSTECTOMY
     Dosage: UNK
     Dates: start: 2005, end: 2005

REACTIONS (5)
  - Malaise [Recovered/Resolved]
  - Flatulence [Recovered/Resolved]
  - Product use in unapproved indication [Unknown]
  - Dyspepsia [Recovered/Resolved]
  - Off label use [Unknown]

NARRATIVE: CASE EVENT DATE: 2005
